FAERS Safety Report 6051295-2 (Version None)
Quarter: 2009Q1

REPORT INFORMATION
  Report Type: 
  Country: None (occurrence: None)
  Receive Date: 20090126
  Receipt Date: 20090114
  Transmission Date: 20090719
  Serious: Yes (Hospitalization)
  Sender: FDA-Public Use
  Company Number: US-BIOGENIDEC-2009BI001282

PATIENT
  Age: 53 Year
  Sex: Female

DRUGS (3)
  1. TYSABRI [Suspect]
     Indication: MULTIPLE SCLEROSIS
     Route: 042
     Dates: start: 20080429, end: 20080721
  2. TYSABRI [Suspect]
     Route: 042
     Dates: start: 20070327, end: 20071106
  3. TYSABRI [Suspect]
     Route: 042
     Dates: start: 20081029

REACTIONS (1)
  - SUICIDAL IDEATION [None]
